FAERS Safety Report 16634981 (Version 2)
Quarter: 2019Q4

REPORT INFORMATION
  Report Type: Spontaneous
  Country: US (occurrence: US)
  Receive Date: 20190726
  Receipt Date: 20191024
  Transmission Date: 20200122
  Serious: No
  Sender: FDA-Public Use
  Company Number: US-EMMAUS MEDICAL, INC.-EMM201906-000202

PATIENT
  Age: 27 Year
  Sex: Female

DRUGS (1)
  1. ENDARI [Suspect]
     Active Substance: GLUTAMINE
     Indication: SICKLE CELL DISEASE
     Route: 048
     Dates: start: 20190325

REACTIONS (4)
  - Back pain [Unknown]
  - Pain in extremity [Unknown]
  - Medication error [Unknown]
  - Pain in jaw [Unknown]

NARRATIVE: CASE EVENT DATE: 20190401
